FAERS Safety Report 8241101-X (Version None)
Quarter: 2012Q1

REPORT INFORMATION
  Report Type: 
  Country: None (occurrence: None)
  Receive Date: 20120328
  Receipt Date: 20120320
  Transmission Date: 20120608
  Serious: Yes (Other)
  Sender: FDA-Public Use
  Company Number: US-GLAXOSMITHKLINE-A0971373A

PATIENT
  Age: 53 Year
  Sex: Female
  Weight: 60.9 kg

DRUGS (3)
  1. WELLBUTRIN [Suspect]
     Indication: SMOKING CESSATION THERAPY
     Route: 048
  2. ATROVENT [Concomitant]
     Indication: OXYGEN SATURATION DECREASED
     Route: 055
  3. VENTOLIN [Concomitant]
     Indication: OXYGEN SATURATION DECREASED
     Route: 055

REACTIONS (1)
  - TRANSIENT ISCHAEMIC ATTACK [None]
